FAERS Safety Report 7248178-9 (Version None)
Quarter: 2011Q1

REPORT INFORMATION
  Report Type: 
  Country: None (occurrence: None)
  Receive Date: 20110127
  Receipt Date: 20110119
  Transmission Date: 20110831
  Serious: Yes (Other)
  Sender: FDA-Public Use
  Company Number: US-BAYER-2011-008434

PATIENT
  Sex: Female

DRUGS (1)
  1. OCELLA [Suspect]
     Dosage: UNK
     Route: 048
     Dates: start: 20081201, end: 20090301

REACTIONS (7)
  - POST CHOLECYSTECTOMY SYNDROME [None]
  - MENTAL DISORDER [None]
  - GALLBLADDER PAIN [None]
  - GALLBLADDER DISORDER [None]
  - INJURY [None]
  - ANXIETY [None]
  - PAIN [None]
